FAERS Safety Report 12378757 (Version 1)
Quarter: 2016Q2

REPORT INFORMATION
  Report Type: Spontaneous
  Country: RO (occurrence: RO)
  Receive Date: 20160517
  Receipt Date: 20160517
  Transmission Date: 20160815
  Serious: Yes (Hospitalization)
  Sender: FDA-Public Use
  Company Number: PHHY2016RO065907

PATIENT
  Age: 11 Year
  Sex: Male

DRUGS (1)
  1. OMNITROPE [Suspect]
     Active Substance: SOMATROPIN
     Indication: DWARFISM
     Dosage: UNK ML, UNK
     Route: 058
     Dates: start: 20150502

REACTIONS (2)
  - Abscess jaw [Recovered/Resolved]
  - Gingival cancer [Recovered/Resolved]

NARRATIVE: CASE EVENT DATE: 20160425
